FAERS Safety Report 7609962-2 (Version None)
Quarter: 2011Q3

REPORT INFORMATION
  Report Type: 
  Country: None (occurrence: None)
  Receive Date: 20110714
  Receipt Date: 20110706
  Transmission Date: 20111222
  Serious: Yes (Hospitalization)
  Sender: FDA-Public Use
  Company Number: CA-GENENTECH-321166

PATIENT
  Age: 67 Year
  Sex: Male
  Weight: 93 kg

DRUGS (6)
  1. CISPLATIN [Suspect]
     Indication: NON-HODGKIN'S LYMPHOMA
     Dosage: UNK UNK, UNKNOWN
     Route: 065
  2. DEXAMETHASONE [Suspect]
     Indication: NON-HODGKIN'S LYMPHOMA
     Dosage: UNK UNK, UNKNOWN
     Route: 065
  3. GEMCITABINE [Suspect]
     Indication: NON-HODGKIN'S LYMPHOMA
     Dosage: UNK UNK, UNKNOWN
     Route: 065
  4. INOTUZUMAB OZOGAMICIN [Suspect]
     Indication: NON-HODGKIN'S LYMPHOMA
     Dosage: 1.7 MG, Q21D
     Route: 042
     Dates: start: 20110518
  5. ALLOPURINOL [Concomitant]
     Indication: PROPHYLAXIS
     Dosage: UNK
     Dates: start: 20110516
  6. RITUXAN [Suspect]
     Indication: NON-HODGKIN'S LYMPHOMA
     Dosage: UNK UNK, UNKNOWN
     Route: 065

REACTIONS (1)
  - HAEMORRHAGE [None]
